FAERS Safety Report 25549190 (Version 1)
Quarter: 2025Q3

REPORT INFORMATION
  Report Type: Spontaneous
  Country: CA (occurrence: CA)
  Receive Date: 20250714
  Receipt Date: 20250714
  Transmission Date: 20251020
  Serious: Yes (Disabling)
  Sender: SANDOZ
  Company Number: CA-SANDOZ-SDZ2025CA049263

PATIENT
  Age: 77 Year
  Sex: Female
  Weight: 64.399 kg

DRUGS (3)
  1. GLUMETZA [Suspect]
     Active Substance: METFORMIN HYDROCHLORIDE
     Indication: Diabetes mellitus
     Dosage: UNK, QD, EXTENDED RELEASE TABLET
     Route: 065
  2. METFORMIN [Suspect]
     Active Substance: METFORMIN HYDROCHLORIDE
     Indication: Diabetes mellitus
     Dosage: 1000 MG, BID
     Route: 048
  3. FOSINOPRIL [Concomitant]
     Active Substance: FOSINOPRIL
     Indication: Product used for unknown indication
     Route: 065

REACTIONS (6)
  - Alopecia [Recovering/Resolving]
  - Anosmia [Recovering/Resolving]
  - Arthralgia [Recovering/Resolving]
  - Nail disorder [Recovering/Resolving]
  - Polyneuropathy [Recovering/Resolving]
  - Fatigue [Recovering/Resolving]
